FAERS Safety Report 5075229-2 (Version None)
Quarter: 2006Q3

REPORT INFORMATION
  Report Type: 
  Country: None (occurrence: None)
  Receive Date: 20060809
  Receipt Date: 20060630
  Transmission Date: 20061208
  Serious: Yes (Hospitalization)
  Sender: FDA-Public Use
  Company Number: PHBS2006JP09957

PATIENT
  Age: 67 Year
  Sex: Female
  Weight: 49 kg

DRUGS (3)
  1. VOLTAREN [Suspect]
     Indication: RHEUMATOID ARTHRITIS
     Dosage: 50 MG/DAY
     Route: 048
     Dates: start: 20060502, end: 20060613
  2. RIMATIL [Suspect]
     Indication: RHEUMATOID ARTHRITIS
     Dosage: 200 MG/DAY
     Route: 048
     Dates: start: 20060502, end: 20060608
  3. MUCOSTA [Concomitant]
     Indication: RHEUMATOID ARTHRITIS
     Dosage: 200 MG/DAY
     Route: 048
     Dates: start: 20060502, end: 20060613

REACTIONS (13)
  - ASPARTATE AMINOTRANSFERASE DECREASED [None]
  - BLOOD LACTATE DEHYDROGENASE INCREASED [None]
  - BLOOD URINE PRESENT [None]
  - DRUG ERUPTION [None]
  - FEELING HOT [None]
  - GENERALISED ERYTHEMA [None]
  - GENITAL PAIN [None]
  - LYMPHADENOPATHY [None]
  - OEDEMA PERIPHERAL [None]
  - PRURITUS [None]
  - SKIN EXFOLIATION [None]
  - SKIN TEST POSITIVE [None]
  - STOMATITIS [None]
